FAERS Safety Report 5408110-7 (Version None)
Quarter: 2007Q3

REPORT INFORMATION
  Report Type: 
  Country: None (occurrence: None)
  Receive Date: 20070806
  Receipt Date: 20070806
  Transmission Date: 20080115
  Serious: Yes (Hospitalization)
  Sender: FDA-Public Use
  Company Number: None

PATIENT
  Age: 80 Year
  Sex: Male
  Weight: 100.1089 kg

DRUGS (2)
  1. GLIPIZIDE [Suspect]
     Indication: TYPE 2 DIABETES MELLITUS
     Dosage: 5MG EVERY DAY PO
     Route: 048
     Dates: start: 20050701, end: 20070423
  2. INSULIN [Suspect]
     Indication: DIABETES MELLITUS
     Dosage: 125UNITS SQ
     Route: 058
     Dates: start: 20070328, end: 20070423

REACTIONS (1)
  - HYPOGLYCAEMIA [None]
